FAERS Safety Report 6905943-2 (Version None)
Quarter: 2010Q3

REPORT INFORMATION
  Report Type: 
  Country: None (occurrence: None)
  Receive Date: 20100804
  Receipt Date: 20100729
  Transmission Date: 20110219
  Serious: Yes (Other)
  Sender: FDA-Public Use
  Company Number: JP-ROCHE-718834

PATIENT
  Age: 20 Year
  Sex: Male

DRUGS (2)
  1. CLONAZEPAM [Suspect]
     Indication: PRODUCT USED FOR UNKNOWN INDICATION
     Route: 048
  2. SEROQUEL [Concomitant]
     Dosage: FORM: PERORAL AGENT.  DOSAGE IS UNCERTAIN.
     Route: 048

REACTIONS (1)
  - INTERSTITIAL LUNG DISEASE [None]
